FAERS Safety Report 11371936 (Version 1)
Quarter: 2015Q3

REPORT INFORMATION
  Report Type: Report from Study
  Country: US (occurrence: US)
  Receive Date: 20150812
  Receipt Date: 20150812
  Transmission Date: 20151125
  Serious: Yes (Other)
  Sender: FDA-Public Use
  Company Number: US-BAYER-2015-399045

PATIENT
  Age: 79 Year
  Sex: Male

DRUGS (2)
  1. TICLOPIDINE [Interacting]
     Active Substance: TICLOPIDINE
     Dosage: 250 MG, BID
  2. ASPIRIN. [Suspect]
     Active Substance: ASPIRIN
     Dosage: 81 MG, QD

REACTIONS (3)
  - Post procedural haematoma [None]
  - Labelled drug-drug interaction medication error [None]
  - Post procedural haemorrhage [None]
